FAERS Safety Report 5710534-5 (Version None)
Quarter: 2008Q2

REPORT INFORMATION
  Report Type: 
  Country: None (occurrence: None)
  Receive Date: 20080415
  Receipt Date: 20080401
  Transmission Date: 20081010
  Serious: Yes (Other)
  Sender: FDA-Public Use
  Company Number: 2007US002686

PATIENT
  Age: 15 Year
  Sex: Female

DRUGS (5)
  1. AMBISOME [Suspect]
     Indication: ASPERGILLOSIS
     Dosage: INTRATHECAL
     Route: 037
  2. MYCAMINE [Suspect]
     Indication: ASPERGILLOSIS
     Dosage: INTRATHECAL
     Route: 037
  3. VORICONAZOLE (VORICONAZOLE) [Suspect]
     Indication: ASPERGILLOSIS
     Dosage: INTRATHECAL
     Route: 037
  4. AMPHOTERICIN B [Suspect]
     Indication: ASPERGILLOSIS
     Dosage: INTRATHECAL
     Route: 037
  5. CASPOFUNGIN (CASPOFUNGIN) [Suspect]
     Indication: ASPERGILLOSIS
     Dosage: INTRATHECAL
     Route: 037

REACTIONS (1)
  - DRUG RESISTANCE [None]
